FAERS Safety Report 25449543 (Version 1)
Quarter: 2025Q2

REPORT INFORMATION
  Report Type: Spontaneous
  Country: US (occurrence: US)
  Receive Date: 20250618
  Receipt Date: 20250618
  Transmission Date: 20250716
  Serious: No
  Sender: JOHNSON AND JOHNSON
  Company Number: US-VIIV HEALTHCARE-US2025075052

PATIENT
  Age: 50 Year
  Sex: Male

DRUGS (3)
  1. RILPIVIRINE [Suspect]
     Active Substance: RILPIVIRINE
     Indication: HIV infection
     Route: 065
     Dates: start: 20230209, end: 20250306
  2. CABOTEGRAVIR [Suspect]
     Active Substance: CABOTEGRAVIR
     Indication: HIV infection
     Route: 065
     Dates: start: 20230209, end: 20250306
  3. LOSARTAN [Concomitant]
     Active Substance: LOSARTAN
     Indication: Hypertension
     Dates: start: 20170301

REACTIONS (2)
  - Nervous system disorder [Recovering/Resolving]
  - Depression [Recovering/Resolving]

NARRATIVE: CASE EVENT DATE: 20230411
